FAERS Safety Report 6067387-8 (Version None)
Quarter: 2009Q1

REPORT INFORMATION
  Report Type: 
  Country: None (occurrence: None)
  Receive Date: 20090205
  Receipt Date: 20090123
  Transmission Date: 20090719
  Serious: Yes (Other)
  Sender: FDA-Public Use
  Company Number: DE-ROCHE-610830

PATIENT
  Sex: Female

DRUGS (3)
  1. RIBAVIRIN [Suspect]
     Dosage: FREQUENCY: DAILY; MONOTHERAPY; DOSE: 1000 MG OR 1200 MG
     Route: 065
  2. RIBAVIRIN [Suspect]
     Dosage: FREQUENCY: DAILY; COMBINATION THERAPY
     Route: 065
  3. PEG-INTRON [Suspect]
     Dosage: THERAPY INTERRUPTED PREMATURELY IN WEEK 8; COMBINATION THERAPY
     Route: 058

REACTIONS (2)
  - DIZZINESS [None]
  - HYPOTENSION [None]
